FAERS Safety Report 5237957-5 (Version None)
Quarter: 2007Q1

REPORT INFORMATION
  Report Type: 
  Country: None (occurrence: None)
  Receive Date: 20070209
  Receipt Date: 20070129
  Transmission Date: 20070707
  Serious: Yes (Hospitalization)
  Sender: FDA-Public Use
  Company Number: 2007306055

PATIENT
  Sex: Male

DRUGS (5)
  1. NICORETTE [Suspect]
     Indication: SMOKING CESSATION THERAPY
     Dosage: TRANSDERMAL
     Route: 062
     Dates: start: 20060101
  2. PROPRANOLOL [Concomitant]
  3. ANTI-ASTHMATICS (ANTI-ASTHMATICS) [Concomitant]
  4. BETA BLOCKING AGENTS (BETA BLOCKING AGENTS) [Concomitant]
  5. DRUG UNSPECIFIED (DRUG, UNSPECIFIED) [Concomitant]

REACTIONS (1)
  - PNEUMOTHORAX [None]
